FAERS Safety Report 14999775 (Version 1)
Quarter: 2018Q2

REPORT INFORMATION
  Report Type: Spontaneous
  Country: US (occurrence: US)
  Receive Date: 20180521
  Receipt Date: 20180521
  Transmission Date: 20180711
  Serious: No
  Sender: FDA-Public Use
  Company Number: None

PATIENT
  Age: 27 Year
  Sex: Female

DRUGS (1)
  1. HUMIRA [Suspect]
     Active Substance: ADALIMUMAB
     Indication: PRODUCT USED FOR UNKNOWN INDICATION
     Route: 058
     Dates: start: 20171212

REACTIONS (6)
  - Hyperhidrosis [None]
  - Breast pain [None]
  - Acne [None]
  - Hot flush [None]
  - Decreased appetite [None]
  - Miliaria [None]

NARRATIVE: CASE EVENT DATE: 20180517
